FAERS Safety Report 7395101-2 (Version None)
Quarter: 2011Q1

REPORT INFORMATION
  Report Type: 
  Country: None (occurrence: None)
  Receive Date: 20110331
  Receipt Date: 20110331
  Transmission Date: 20110831
  Serious: Yes (Hospitalization)
  Sender: FDA-Public Use
  Company Number: None

PATIENT
  Sex: Male
  Weight: 106.1 kg

DRUGS (2)
  1. ERLONITIB 150MG TABLETS GENENTECH [Suspect]
     Dosage: 150 MG DAILY PO
     Route: 048
     Dates: start: 20110113, end: 20110213
  2. BEVACIZUMAB 25MG/ML - 400MG VIAL GENENTECH [Suspect]
     Indication: LUNG ADENOCARCINOMA
     Dosage: 15MG/KG Q 3 WEEKS IV
     Route: 042
     Dates: start: 20110113, end: 20110214

REACTIONS (13)
  - LUNG ADENOCARCINOMA [None]
  - AGGRESSION [None]
  - MUSCULOSKELETAL CHEST PAIN [None]
  - HALLUCINATION [None]
  - ASTHENIA [None]
  - DEHYDRATION [None]
  - GAIT DISTURBANCE [None]
  - HYPOPHAGIA [None]
  - PERFORMANCE STATUS DECREASED [None]
  - SYNCOPE [None]
  - NEOPLASM MALIGNANT [None]
  - FLUID INTAKE REDUCED [None]
  - RASH ERYTHEMATOUS [None]
